FAERS Safety Report 17284047 (Version 1)
Quarter: 2020Q1

REPORT INFORMATION
  Report Type: Spontaneous
  Country: US (occurrence: US)
  Receive Date: 20191230
  Receipt Date: 20191230
  Transmission Date: 20200409
  Serious: No
  Sender: FDA-Public Use
  Company Number: None

PATIENT
  Sex: Male

DRUGS (1)
  1. HUMATROPE [Suspect]
     Active Substance: SOMATROPIN
     Indication: HYPOPITUITARISM
     Dosage: ?          OTHER DOSE:2.8MG;OTHER FREQUENCY:6 DAYS PER WEEK;?
     Route: 058
     Dates: start: 20190228

REACTIONS (3)
  - Injection site pain [None]
  - Burning sensation [None]
  - Injection site reaction [None]
